FAERS Safety Report 5304884-4 (Version None)
Quarter: 2007Q2

REPORT INFORMATION
  Report Type: 
  Country: None (occurrence: None)
  Receive Date: 20070417
  Receipt Date: 20070406
  Transmission Date: 20071010
  Serious: Yes (Other)
  Sender: FDA-Public Use
  Company Number: 2007SP006142

PATIENT
  Age: 13 Year
  Sex: Female
  Weight: 45.3597 kg

DRUGS (2)
  1. CLARITIN [Suspect]
     Indication: SEASONAL ALLERGY
     Dosage: 1 DF; ONCE; PO
     Route: 048
     Dates: start: 20070401, end: 20070401
  2. ALEVE [Suspect]
     Indication: HEADACHE
     Dosage: ONCE
     Dates: start: 20070401, end: 20070401

REACTIONS (12)
  - DEHYDRATION [None]
  - DYSARTHRIA [None]
  - EYE DISORDER [None]
  - FACIAL PALSY [None]
  - HEADACHE [None]
  - HYPOAESTHESIA ORAL [None]
  - MIGRAINE [None]
  - NAUSEA [None]
  - PARAESTHESIA [None]
  - SOMNOLENCE [None]
  - SPEECH DISORDER [None]
  - STRESS [None]
